FAERS Safety Report 12705920 (Version 2)
Quarter: 2017Q1

REPORT INFORMATION
  Report Type: Spontaneous
  Country: US (occurrence: US)
  Receive Date: 20160901
  Receipt Date: 20170227
  Transmission Date: 20170428
  Serious: No
  Sender: FDA-Public Use
  Company Number: US-TEVA-679329USA

PATIENT
  Sex: Female

DRUGS (14)
  1. COPAXONE [Suspect]
     Active Substance: GLATIRAMER ACETATE
     Indication: MULTIPLE SCLEROSIS
     Route: 058
     Dates: start: 20160202
  2. BISOPROLOL/HCTZ [Concomitant]
     Active Substance: BISOPROLOL FUMARATE\HYDROCHLOROTHIAZIDE
  3. OXYCODONE [Concomitant]
     Active Substance: OXYCODONE
  4. BACLOFEN. [Concomitant]
     Active Substance: BACLOFEN
  5. NEURONTIN [Concomitant]
     Active Substance: GABAPENTIN
  6. MOTRIN [Concomitant]
     Active Substance: IBUPROFEN
  7. ATIVAN [Concomitant]
     Active Substance: LORAZEPAM
  8. CHLORDIAZEPOXIDE. [Concomitant]
     Active Substance: CHLORDIAZEPOXIDE
  9. NEXIUM [Concomitant]
     Active Substance: ESOMEPRAZOLE MAGNESIUM
  10. TIZANIDINE. [Concomitant]
     Active Substance: TIZANIDINE
  11. ZANAFLEX [Concomitant]
     Active Substance: TIZANIDINE HYDROCHLORIDE
  12. IBUPROFEN. [Concomitant]
     Active Substance: IBUPROFEN
  13. LORAZEPAM. [Concomitant]
     Active Substance: LORAZEPAM
  14. GABAPENTIN. [Concomitant]
     Active Substance: GABAPENTIN

REACTIONS (1)
  - Injection site reaction [Unknown]

NARRATIVE: CASE EVENT DATE: 2017
